FAERS Safety Report 23359048 (Version 1)
Quarter: 2024Q1

REPORT INFORMATION
  Report Type: Spontaneous
  Country: CA (occurrence: CA)
  Receive Date: 20240102
  Receipt Date: 20240102
  Transmission Date: 20240409
  Serious: Yes (Hospitalization, Other)
  Sender: FDA-Public Use
  Company Number: CA-ANIPHARMA-2023-CA-004258

PATIENT
  Age: 6 Decade
  Sex: Female

DRUGS (9)
  1. CALCIUM CARBONATE [Concomitant]
     Active Substance: CALCIUM CARBONATE
  2. FLUCONAZOLE [Suspect]
     Active Substance: FLUCONAZOLE
     Indication: Cryptococcosis
     Dosage: 400 MG ONCE DAILY
     Route: 048
  3. AMPHOTERICIN B [Concomitant]
     Active Substance: AMPHOTERICIN B
  4. FLUCYTOSINE [Concomitant]
     Active Substance: FLUCYTOSINE
  5. ONDANSETRON [Concomitant]
     Active Substance: ONDANSETRON
  6. PREGABALIN [Concomitant]
     Active Substance: PREGABALIN
  7. LEVOTHYROXINE [Concomitant]
     Active Substance: LEVOTHYROXINE
  8. ROSUVASTATIN [Concomitant]
     Active Substance: ROSUVASTATIN
  9. PANTOPRAZOLE [Concomitant]
     Active Substance: PANTOPRAZOLE

REACTIONS (1)
  - Acute kidney injury [Recovered/Resolved]
